FAERS Safety Report 9206034 (Version 1)
Quarter: 2013Q1

REPORT INFORMATION
  Report Type: Spontaneous
  Country: US (occurrence: None)
  Receive Date: 20120709
  Receipt Date: 20120709
  Transmission Date: 20140127
  Serious: Yes (Other)
  Sender: FDA-Public Use
  Company Number: PHHY2010US53327

PATIENT
  Age: 85 Year
  Sex: Female
  Weight: 65.7 kg

DRUGS (11)
  1. GLEEVEC [Suspect]
     Indication: CHRONIC MYELOID LEUKAEMIA
     Route: 048
     Dates: start: 20081106
  2. NASACORT [Suspect]
  3. LISINOPRIL (LISINOPRIL) [Suspect]
  4. COREG (CARVEDILOL) [Suspect]
  5. AZOPT [Suspect]
  6. COMBIGAN [Suspect]
  7. MAXZIDE (HYDROCHLOROTHIAZIDE, TRIAMTERENE) [Concomitant]
  8. CLARITIN (LORATADINE) [Concomitant]
  9. VITAMIN D3 (COLECALCIFEROL) [Concomitant]
  10. CALCIUM CITRATE (CALCIUM CITRATE) [Concomitant]
  11. SINUS MEDICATION (PARACETAMOL, PSEUDOEPHEDRINE HYDROCHLORIDE) [Concomitant]

REACTIONS (13)
  - Glaucoma [None]
  - Blood pressure increased [None]
  - Eye injury [None]
  - Neuralgia [None]
  - Drug interaction [None]
  - Eye disorder [None]
  - Abnormal sensation in eye [None]
  - Sinusitis [None]
  - Headache [None]
  - Oedema peripheral [None]
  - Intraocular pressure increased [None]
  - Eye pain [None]
  - Vision blurred [None]
